FAERS Safety Report 20975062 (Version 1)
Quarter: 2022Q2

REPORT INFORMATION
  Report Type: Spontaneous
  Country: BG (occurrence: None)
  Receive Date: 20220617
  Receipt Date: 20220617
  Transmission Date: 20220721
  Serious: Yes (Hospitalization, Other)
  Sender: FDA-Public Use
  Company Number: 2022A219569

PATIENT
  Age: 73 Year
  Sex: Male

DRUGS (1)
  1. DAPAGLIFLOZIN [Suspect]
     Active Substance: DAPAGLIFLOZIN
     Indication: Chronic kidney disease
     Dosage: ONCE A DAY
     Route: 048
     Dates: start: 202203

REACTIONS (6)
  - COVID-19 [Unknown]
  - Urea urine increased [Recovering/Resolving]
  - Creatinine urine increased [Recovering/Resolving]
  - Glycosylated haemoglobin increased [Unknown]
  - Glomerular filtration rate decreased [Recovering/Resolving]
  - Urine uric acid increased [Recovering/Resolving]

NARRATIVE: CASE EVENT DATE: 20220401
